FAERS Safety Report 25558574 (Version 1)
Quarter: 2025Q3

REPORT INFORMATION
  Report Type: Spontaneous
  Country: US (occurrence: US)
  Receive Date: 20250715
  Receipt Date: 20250715
  Transmission Date: 20251021
  Serious: No
  Sender: NOVO NORDISK
  Company Number: US-NOVOPROD-1447573

PATIENT
  Sex: Male

DRUGS (3)
  1. OZEMPIC [Suspect]
     Active Substance: SEMAGLUTIDE
     Indication: Cardiac failure
  2. OZEMPIC [Suspect]
     Active Substance: SEMAGLUTIDE
  3. OZEMPIC [Suspect]
     Active Substance: SEMAGLUTIDE
     Indication: Glucose tolerance impaired

REACTIONS (3)
  - Feeling abnormal [Unknown]
  - Product use in unapproved indication [Unknown]
  - Off label use [Unknown]
